FAERS Safety Report 6031732-X (Version None)
Quarter: 2009Q1

REPORT INFORMATION
  Report Type: 
  Country: None (occurrence: None)
  Receive Date: 20090107
  Receipt Date: 20090107
  Transmission Date: 20090719
  Serious: Yes (Other)
  Sender: FDA-Public Use
  Company Number: None

PATIENT
  Age: 93 Year
  Sex: Female
  Weight: 40.3701 kg

DRUGS (1)
  1. ACTONEL [Suspect]
     Indication: OSTEOPOROSIS
     Dosage: 150 MG ONCE A MONTH
     Dates: start: 20081110, end: 20081111

REACTIONS (5)
  - CELLULITIS [None]
  - DIARRHOEA [None]
  - FLUID RETENTION [None]
  - OEDEMA PERIPHERAL [None]
  - WEIGHT INCREASED [None]
